FAERS Safety Report 5763480-5 (Version None)
Quarter: 2008Q2

REPORT INFORMATION
  Report Type: 
  Country: None (occurrence: None)
  Receive Date: 20080529
  Receipt Date: 20080409
  Transmission Date: 20081010
  Serious: Yes (Other)
  Sender: FDA-Public Use
  Company Number: CIP07000968

PATIENT
  Age: 75 Year
  Sex: Female

DRUGS (19)
  1. ACTONEL [Suspect]
     Indication: RHEUMATOID ARTHRITIS
     Dosage: 35 MG WEEKLY, ORAL; 70 MG WEEKLY, ORAL
     Route: 048
     Dates: start: 20011101, end: 20060301
  2. ACTONEL [Suspect]
     Indication: RHEUMATOID ARTHRITIS
     Dosage: 35 MG WEEKLY, ORAL; 70 MG WEEKLY, ORAL
     Route: 048
     Dates: start: 20040522, end: 20060301
  3. FOSAMAX [Suspect]
     Indication: RHEUMATOID ARTHRITIS
     Dosage: 35 MG ONCE WEEKLY, ORAL
     Route: 048
     Dates: start: 20010622, end: 20011101
  4. PREDNISONE [Suspect]
     Indication: RHEUMATOID ARTHRITIS
     Dosage: 1 MG, ORAL
     Route: 048
  5. METHOTREXATE [Concomitant]
  6. CALCIUM (CALCIUM) [Concomitant]
  7. FOLIC ACID [Concomitant]
  8. DARVOCET (PARACETAMOL, DEXTROPOPOXYPHENE HYDROCHLORIDE) [Concomitant]
  9. PREVACID [Concomitant]
  10. ASPIRIN [Concomitant]
  11. VITAMIN B12 [Concomitant]
  12. LIPITOR [Concomitant]
  13. REGLAN [Concomitant]
  14. PAXIL [Concomitant]
  15. TENORMIN [Concomitant]
  16. IRON (IRON) [Concomitant]
  17. MECLIZINE [Concomitant]
  18. IPRATROPIUM BROMIDE [Concomitant]
  19. REMICADE [Concomitant]

REACTIONS (18)
  - CHILLS [None]
  - DRY MOUTH [None]
  - GINGIVAL BLEEDING [None]
  - GINGIVAL SWELLING [None]
  - HYPOAESTHESIA ORAL [None]
  - IMPAIRED HEALING [None]
  - JAW DISORDER [None]
  - LYMPHADENOPATHY [None]
  - MOUTH ULCERATION [None]
  - NUMB CHIN SYNDROME [None]
  - ORAL PAIN [None]
  - OSTEOMYELITIS [None]
  - OSTEONECROSIS [None]
  - POST PROCEDURAL SWELLING [None]
  - PRIMARY SEQUESTRUM [None]
  - TOOTH FRACTURE [None]
  - TOOTH LOSS [None]
  - WOUND DRAINAGE [None]
